FAERS Safety Report 6802001-2 (Version None)
Quarter: 2010Q2

REPORT INFORMATION
  Report Type: 
  Country: None (occurrence: None)
  Receive Date: 20100629
  Receipt Date: 20100616
  Transmission Date: 20101027
  Serious: Yes (Other)
  Sender: FDA-Public Use
  Company Number: PHHY2010JP39506

PATIENT

DRUGS (1)
  1. AFINITOR [Suspect]
     Route: 048

REACTIONS (1)
  - EOSINOPHIL COUNT INCREASED [None]
